FAERS Safety Report 15762036 (Version 2)
Quarter: 2019Q1

REPORT INFORMATION
  Report Type: Report from Study
  Country: US (occurrence: US)
  Receive Date: 20181226
  Receipt Date: 20190328
  Transmission Date: 20190417
  Serious: Yes (Hospitalization, Other)
  Sender: FDA-Public Use
  Company Number: US-BAYER-2018-238606

PATIENT
  Age: 71 Year
  Sex: Male
  Weight: 72.56 kg

DRUGS (3)
  1. REGORAFENIB. [Suspect]
     Active Substance: REGORAFENIB
     Indication: GASTROINTESTINAL STROMAL TUMOUR
     Dosage: 80 MG, QD
     Route: 048
     Dates: start: 20181004, end: 20181205
  2. REGORAFENIB. [Suspect]
     Active Substance: REGORAFENIB
     Indication: GASTROINTESTINAL STROMAL TUMOUR
     Dosage: 80 MG, QD
     Route: 048
     Dates: start: 20181212, end: 20190104
  3. CEFTAZIDIME. [Concomitant]
     Active Substance: CEFTAZIDIME
     Indication: PYURIA
     Dosage: UNK UNK, ONCE
     Route: 042

REACTIONS (3)
  - Anaemia [Recovered/Resolved]
  - Confusional state [Recovered/Resolved]
  - Confusional state [None]

NARRATIVE: CASE EVENT DATE: 20181205
